FAERS Safety Report 4597834-X (Version None)
Quarter: 2005Q1

REPORT INFORMATION
  Report Type: 
  Country: None (occurrence: None)
  Receive Date: 20050301
  Receipt Date: 20050210
  Transmission Date: 20050727
  Serious: Yes (Hospitalization)
  Sender: FDA-Public Use
  Company Number: 05-115

PATIENT
  Age: 87 Year
  Sex: Female

DRUGS (25)
  1. VERAPAMIL [Suspect]
     Dosage: 240MG/4MG (1 IN 1 D)
     Dates: start: 20041126
  2. TARKA [Suspect]
     Dosage: 240 MG/4M, 1 IN 1 D
     Dates: start: 20040826, end: 20041126
  3. HYDROCHLOROTHIAZIDE [Concomitant]
  4. TRIAMTERENE [Concomitant]
  5. GALENIC/PARACETAMOL/CODEINE [Concomitant]
  6. ACETYLSALICYLIC ACID SRT [Concomitant]
  7. ALBUTEROL [Concomitant]
  8. TIMOLOL, 2 DROPS IN 1 D [Concomitant]
  9. ISOSORBIDE DINITRATE, 0.4 MG AS REQUIRED [Concomitant]
  10. IPRATROPIUM BROMIDE, 2.0 PUFF AS NEEDED [Concomitant]
  11. SALBUTAMOL, 2.0 PUFF AS NEEDED [Concomitant]
  12. POTASSIUM CHLORIDE, 1 TABLET, 3 IN 1 D [Concomitant]
  13. NITRO DUR PATCH, 0.4 MG 1 IN 1 H R. [Concomitant]
  14. UNIDENT, 2 MG 1 IN 1 D [Concomitant]
  15. PARACETAMOL, AS REQUIRED [Concomitant]
  16. ALENDRONATE SODIUM, 70 MG, 1 IN 1 WK [Concomitant]
  17. FLUTICASONE, 250MG [Concomitant]
  18. ETIDRONATE/CALCIUM, 50 MG [Concomitant]
  19. INFLUENZA VACCINE, 0.5CC [Concomitant]
  20. INFLUENZA VIRUS VACCINE POLYVALENT, PRPHYLAXIS [Concomitant]
  21. MAVIK [Suspect]
     Dosage: SEE IMAGE
     Dates: start: 20040607, end: 20040621
  22. MAVIK [Suspect]
     Dosage: SEE IMAGE
     Dates: start: 20040621, end: 20040629
  23. MAVIK [Suspect]
     Dosage: SEE IMAGE
     Dates: start: 20040629, end: 20040729
  24. MAVIK [Suspect]
     Dosage: SEE IMAGE
     Dates: start: 20040729, end: 20040826
  25. MAVIK [Suspect]
     Dosage: SEE IMAGE
     Dates: start: 20041126

REACTIONS (9)
  - BILE DUCT STONE [None]
  - BLOOD POTASSIUM DECREASED [None]
  - CHOLANGITIS ACUTE [None]
  - INFLUENZA [None]
  - ORTHOSTATIC HYPOTENSION [None]
  - RESTLESS LEGS SYNDROME [None]
  - TREATMENT NONCOMPLIANCE [None]
  - UPPER RESPIRATORY TRACT INFECTION [None]
  - URINARY INCONTINENCE [None]
